FAERS Safety Report 6005093-6 (Version None)
Quarter: 2008Q4

REPORT INFORMATION
  Report Type: 
  Country: None (occurrence: None)
  Receive Date: 20081216
  Receipt Date: 20081211
  Transmission Date: 20090506
  Serious: Yes (Death)
  Sender: FDA-Public Use
  Company Number: PHHY2008JP31661

PATIENT
  Sex: Female

DRUGS (5)
  1. ZOLEDRONIC ACID [Suspect]
     Indication: METASTASES TO BONE
     Dosage: 4MG DILUTED TO 100ML
     Route: 042
     Dates: start: 20071112, end: 20071112
  2. CODEINE PHOSPHATE [Concomitant]
     Dosage: 90MG
     Route: 048
     Dates: start: 20071015, end: 20071117
  3. PREDONINE [Concomitant]
     Dosage: 30MG
     Route: 048
     Dates: start: 20071015, end: 20071117
  4. SELBEX [Concomitant]
     Dosage: 150MG
     Route: 048
     Dates: start: 20071015, end: 20071017
  5. MAGMITT [Concomitant]
     Dosage: UNK
     Route: 048
     Dates: start: 20071015, end: 20071117

REACTIONS (2)
  - DEATH [None]
  - HYPOCALCAEMIA [None]
